FAERS Safety Report 5425639-6 (Version None)
Quarter: 2007Q3

REPORT INFORMATION
  Report Type: 
  Country: None (occurrence: None)
  Receive Date: 20070731
  Receipt Date: 20070403
  Transmission Date: 20080115
  Serious: No
  Sender: FDA-Public Use
  Company Number: US200704001030

PATIENT
  Age: 62 Year
  Sex: Female
  Weight: 145.1 kg

DRUGS (15)
  1. BYETTA [Suspect]
     Indication: TYPE 2 DIABETES MELLITUS
     Dosage: 5 UG, 2/D, SUBCUTANEOUS ; 10 UG, 2/D. SUBCUTANEOUS
     Route: 058
     Dates: start: 20060801, end: 20060901
  2. BYETTA [Suspect]
     Indication: TYPE 2 DIABETES MELLITUS
     Dosage: 5 UG, 2/D, SUBCUTANEOUS ; 10 UG, 2/D. SUBCUTANEOUS
     Route: 058
     Dates: start: 20060901
  3. EXENATIDE 5MCG PEN, DISPOSABLE DEVICE (EXENATIDE PEN (5MCG)) PEN,DISPO [Concomitant]
  4. EXENATIDE 10 MCG PEN, DISPOSABLE DEVICE (EXENATIDE PEN (10MCG)) PEN,DI [Concomitant]
  5. NIFEDIPINE [Concomitant]
  6. ACTOS [Concomitant]
  7. GLIPIZIDE [Concomitant]
  8. LOVASTATIN [Concomitant]
  9. BENAZEPRIL HCL [Concomitant]
  10. ASPIRIN [Concomitant]
  11. CALCIUM (CALCIUM) [Concomitant]
  12. MULTIVITAMIN [Concomitant]
  13. IRON (IRON) [Concomitant]
  14. IBUPROFEN [Concomitant]
  15. OMEGA 3 FISH OIL (FISH OIL) [Concomitant]

REACTIONS (3)
  - VAGINAL HAEMORRHAGE [None]
  - WEIGHT DECREASED [None]
  - WEIGHT INCREASED [None]
